FAERS Safety Report 8973186 (Version 3)
Quarter: 2014Q3

REPORT INFORMATION
  Report Type: Spontaneous
  Country: BR (occurrence: BR)
  Receive Date: 20121219
  Receipt Date: 20140911
  Transmission Date: 20150326
  Serious: Yes (Other)
  Sender: FDA-Public Use
  Company Number: BR-AMGEN-BRASP2012072000

PATIENT
  Age: 60 Year
  Sex: Female
  Weight: 60 kg

DRUGS (2)
  1. ENBREL [Suspect]
     Active Substance: ETANERCEPT
     Indication: RHEUMATOID ARTHRITIS
     Dosage: 50 MG, QWK
     Route: 058
     Dates: start: 20121105
  2. BROMAZEPAM [Concomitant]
     Active Substance: BROMAZEPAM
     Indication: SLEEP DISORDER
     Dosage: 3 MG, ALTERNATE DAY

REACTIONS (20)
  - Pain [Recovering/Resolving]
  - Ocular hyperaemia [Recovering/Resolving]
  - Feeling hot [Unknown]
  - Nausea [Unknown]
  - Urticaria [Unknown]
  - Malaise [Recovering/Resolving]
  - Joint swelling [Not Recovered/Not Resolved]
  - Injection site erythema [Unknown]
  - Pruritus generalised [Unknown]
  - Influenza [Recovering/Resolving]
  - Injection site urticaria [Unknown]
  - Rash [Unknown]
  - Therapeutic response changed [Unknown]
  - Pyrexia [Unknown]
  - Asthenia [Unknown]
  - Injection site pruritus [Unknown]
  - Rheumatoid arthritis [Unknown]
  - Dysphonia [Recovering/Resolving]
  - Limb discomfort [Recovering/Resolving]
  - Injection site pain [Unknown]

NARRATIVE: CASE EVENT DATE: 2012
